FAERS Safety Report 5268050-3 (Version None)
Quarter: 2007Q1

REPORT INFORMATION
  Report Type: 
  Country: None (occurrence: None)
  Receive Date: 20070316
  Receipt Date: 20070316
  Transmission Date: 20070707
  Serious: Yes (Hospitalization)
  Sender: FDA-Public Use
  Company Number: None

PATIENT
  Sex: Male
  Weight: 61.9 kg

DRUGS (10)
  1. CAPECITABINE 500 MG TABLET [Suspect]
     Indication: OESOPHAGEAL CARCINOMA
     Dosage: SEE IMAGE
     Dates: start: 20060727, end: 20060803
  2. SIMVASTATIN [Concomitant]
  3. MEGESTROL ACETATE [Concomitant]
  4. INSULIN [Concomitant]
  5. GLYBURIDE [Concomitant]
  6. FENTANYL [Concomitant]
  7. MORPHINE [Concomitant]
  8. ONDANSETRON [Concomitant]
  9. FERROUS SULFATE [Concomitant]
  10. OMEPRAZOLE [Concomitant]

REACTIONS (1)
  - ACUTE MYOCARDIAL INFARCTION [None]
